FAERS Safety Report 4481896-4 (Version None)
Quarter: 2004Q4

REPORT INFORMATION
  Report Type: 
  Country: None (occurrence: None)
  Receive Date: 20041022
  Receipt Date: 20041014
  Transmission Date: 20050328
  Serious: Yes (Other)
  Sender: FDA-Public Use
  Company Number: US-JNJFOC-20041004683

PATIENT
  Sex: Male
  Weight: 91.63 kg

DRUGS (3)
  1. REMICADE [Suspect]
     Indication: REITER'S SYNDROME
     Dosage: 3 VIALS - FOURTH TREATMENT.
     Route: 042
  2. SUBUTEX [Concomitant]
  3. VALIUM [Concomitant]

REACTIONS (3)
  - INFUSION RELATED REACTION [None]
  - RESPIRATORY FAILURE [None]
  - SHOCK [None]
